FAERS Safety Report 4442830-6 (Version None)
Quarter: 2004Q3

REPORT INFORMATION
  Report Type: 
  Country: None (occurrence: None)
  Receive Date: 20040903
  Receipt Date: 20040621
  Transmission Date: 20050211
  Serious: No
  Sender: FDA-Public Use
  Company Number: 2004UW10731

PATIENT
  Age: 59 Year
  Sex: Female

DRUGS (2)
  1. CRESTOR [Suspect]
     Indication: LOW DENSITY LIPOPROTEIN INCREASED
     Dosage: 5 MG QD PO
     Route: 048
     Dates: start: 20040508, end: 20040517
  2. SYNTHROID [Concomitant]

REACTIONS (1)
  - PANCREATITIS ACUTE [None]
